APPROVED DRUG PRODUCT: DOBUTAMINE HYDROCHLORIDE
Active Ingredient: DOBUTAMINE HYDROCHLORIDE
Strength: EQ 12.5MG BASE/ML
Dosage Form/Route: INJECTABLE;INJECTION
Application: A216131 | Product #001 | TE Code: AP
Applicant: SLATE RUN PHARMACEUTICALS LLC
Approved: Dec 21, 2022 | RLD: No | RS: No | Type: RX